FAERS Safety Report 10408069 (Version 4)
Quarter: 2014Q4

REPORT INFORMATION
  Report Type: Other
  Country: GB (occurrence: GB)
  Receive Date: 20140825
  Receipt Date: 20141027
  Transmission Date: 20150528
  Serious: Yes (Death, Other)
  Sender: FDA-Public Use
  Company Number: GB-MYLAN-2014S1012887

PATIENT

DRUGS (5)
  1. CITALOPRAM [Suspect]
     Active Substance: CITALOPRAM HYDROBROMIDE
     Indication: PRODUCT USED FOR UNKNOWN INDICATION
     Dosage: 10 MG, UNK
  2. RISPERDAL [Suspect]
     Active Substance: RISPERIDONE
     Indication: PARKINSONISM
     Dosage: 50MG ONCE EVERY TWO WEEKS
     Route: 030
  3. RISPERDAL [Suspect]
     Active Substance: RISPERIDONE
     Indication: SCHIZOPHRENIA
  4. ABILIFY [Suspect]
     Active Substance: ARIPIPRAZOLE
     Indication: PRODUCT USED FOR UNKNOWN INDICATION
  5. CITALOPRAM [Suspect]
     Active Substance: CITALOPRAM HYDROBROMIDE
     Dosage: 20 MG, UNK

REACTIONS (8)
  - Myocardial ischaemia [Fatal]
  - Dysstasia [Unknown]
  - Metabolic disorder [Fatal]
  - Ketoacidosis [Fatal]
  - Parkinsonism [Unknown]
  - Alcohol use [None]
  - Faecal incontinence [Unknown]
  - Cardiomegaly [None]

NARRATIVE: CASE EVENT DATE: 20140404
